FAERS Safety Report 9173493 (Version 1)
Quarter: 2013Q1

REPORT INFORMATION
  Report Type: Spontaneous
  Country: US (occurrence: US)
  Receive Date: 20130320
  Receipt Date: 20130320
  Transmission Date: 20140127
  Serious: Yes (Hospitalization, Other)
  Sender: FDA-Public Use
  Company Number: US-ELI_LILLY_AND_COMPANY-US201303004280

PATIENT
  Age: 51 Year
  Sex: Female
  Weight: 92.97 kg

DRUGS (1)
  1. HUMALOG LISPRO [Suspect]
     Dosage: UNK, UNKNOWN
     Route: 058

REACTIONS (4)
  - Hypoglycaemic unconsciousness [Recovered/Resolved]
  - Blood glucose abnormal [Unknown]
  - Abnormal behaviour [Recovered/Resolved]
  - Blood glucose increased [Recovered/Resolved]
